FAERS Safety Report 13560400 (Version 8)
Quarter: 2018Q2

REPORT INFORMATION
  Report Type: Spontaneous
  Country: CA (occurrence: CA)
  Receive Date: 20170518
  Receipt Date: 20180516
  Transmission Date: 20180711
  Serious: Yes (Death, Life-Threatening, Hospitalization, Other)
  Sender: FDA-Public Use
  Company Number: CA-APOTEX-2017AP012117

PATIENT
  Age: 71 Year
  Sex: Female

DRUGS (19)
  1. WELLBUTRIN [Suspect]
     Active Substance: BUPROPION HYDROCHLORIDE
     Indication: PRODUCT USED FOR UNKNOWN INDICATION
     Dosage: UNK
     Route: 048
  2. ROSUVASTATIN MYLAN [Suspect]
     Active Substance: ROSUVASTATIN CALCIUM
     Indication: PRODUCT USED FOR UNKNOWN INDICATION
     Dosage: UNK
     Route: 048
  3. AMITRIPTYLINE [Suspect]
     Active Substance: AMITRIPTYLINE
     Indication: OVERDOSE
     Dosage: UNK
     Route: 065
  4. APO-ROSUVASTATIN [Suspect]
     Active Substance: ROSUVASTATIN
     Indication: OVERDOSE
     Dosage: UNK
     Route: 048
  5. LORAZEPAM MYLAN [Suspect]
     Active Substance: LORAZEPAM
     Indication: PRODUCT USED FOR UNKNOWN INDICATION
     Dosage: UNK
     Route: 048
  6. PROPRANOLOL MYLAN [Suspect]
     Active Substance: PROPRANOLOL HYDROCHLORIDE
     Indication: PRODUCT USED FOR UNKNOWN INDICATION
     Route: 048
  7. APO-OXYCODONE CR [Suspect]
     Active Substance: OXYCODONE HYDROCHLORIDE
     Indication: OVERDOSE
     Dosage: UNK
     Route: 048
  8. APO-LORAZEPAM [Suspect]
     Active Substance: LORAZEPAM
     Indication: OVERDOSE
     Dosage: UNK
     Route: 048
  9. FESOTERODINE [Suspect]
     Active Substance: FESOTERODINE
     Indication: OVERDOSE
     Dosage: UNK
     Route: 048
  10. BUPROPION. [Suspect]
     Active Substance: BUPROPION
     Indication: OVERDOSE
     Dosage: UNK
     Route: 048
  11. TOVIAZ [Suspect]
     Active Substance: FESOTERODINE FUMARATE
     Indication: PRODUCT USED FOR UNKNOWN INDICATION
     Dosage: UNK
     Route: 048
  12. CITALOPRAM MYLAN [Suspect]
     Active Substance: CITALOPRAM HYDROBROMIDE
     Indication: PRODUCT USED FOR UNKNOWN INDICATION
     Dosage: UNK
     Route: 048
  13. LEVOTHYROXINE. [Suspect]
     Active Substance: LEVOTHYROXINE
     Indication: OVERDOSE
     Dosage: UNK
     Route: 048
  14. APO-PROPRANOLOL [Suspect]
     Active Substance: PROPRANOLOL HYDROCHLORIDE
     Indication: OVERDOSE
     Route: 048
  15. APO-AMITRIPTYLINE [Suspect]
     Active Substance: AMITRIPTYLINE HYDROCHLORIDE
     Indication: PRODUCT USED FOR UNKNOWN INDICATION
     Dosage: UNK
     Route: 048
  16. APO-CITALOPRAM [Suspect]
     Active Substance: CITALOPRAM HYDROBROMIDE
     Indication: OVERDOSE
     Dosage: UNK
     Route: 048
  17. APO-PANTOPRAZOLE [Suspect]
     Active Substance: PANTOPRAZOLE SODIUM
     Indication: OVERDOSE
     Dosage: UNK
     Route: 048
  18. AMITRIPTYLENE [Suspect]
     Active Substance: AMITRIPTYLINE
     Indication: PRODUCT USED FOR UNKNOWN INDICATION
     Route: 048
  19. PANTOPRAZOLE MYLAN [Suspect]
     Active Substance: PANTOPRAZOLE SODIUM
     Indication: PRODUCT USED FOR UNKNOWN INDICATION
     Dosage: UNK
     Route: 048

REACTIONS (8)
  - Brain injury [Fatal]
  - Pulseless electrical activity [Fatal]
  - Overdose [Fatal]
  - Electrocardiogram QRS complex prolonged [Fatal]
  - Hypotension [Fatal]
  - Bradycardia [Fatal]
  - Loss of consciousness [Fatal]
  - Cardiac arrest [Fatal]
